FAERS Safety Report 21301706 (Version 1)
Quarter: 2022Q3

REPORT INFORMATION
  Report Type: Spontaneous
  Country: US (occurrence: None)
  Receive Date: 20220906
  Receipt Date: 20220906
  Transmission Date: 20221027
  Serious: No
  Sender: FDA-Public Use
  Company Number: None

PATIENT
  Age: 63 Year
  Sex: Female
  Weight: 67.5 kg

DRUGS (2)
  1. ROMOSOZUMAB-AQQG [Suspect]
     Active Substance: ROMOSOZUMAB-AQQG
     Indication: Osteoporosis
     Dosage: FREQUENCY : MONTHLY;?
     Route: 058
     Dates: start: 20220124, end: 20220826
  2. EVENITY [Concomitant]
     Active Substance: ROMOSOZUMAB-AQQG
     Dates: start: 20220826, end: 20220826

REACTIONS (1)
  - Injection site inflammation [None]

NARRATIVE: CASE EVENT DATE: 20220826
